FAERS Safety Report 7251206-8 (Version None)
Quarter: 2011Q1

REPORT INFORMATION
  Report Type: 
  Country: None (occurrence: None)
  Receive Date: 20110128
  Receipt Date: 20110117
  Transmission Date: 20110831
  Serious: Yes (Hospitalization)
  Sender: FDA-Public Use
  Company Number: US-EISAI INC-E3810-04395-SPO-US

PATIENT
  Sex: Male

DRUGS (6)
  1. VYTORIN [Concomitant]
     Dosage: 10 / 40 MG
     Route: 048
     Dates: start: 20070101
  2. NITROGLYCERIN [Concomitant]
     Route: 048
     Dates: start: 20070101
  3. LOPRESSOR [Concomitant]
     Route: 048
     Dates: start: 20070101
  4. ACIPHEX [Suspect]
     Route: 048
     Dates: start: 20050101
  5. LISINOPRIL [Concomitant]
     Indication: BLOOD PRESSURE ABNORMAL
     Route: 048
     Dates: start: 20070101
  6. HZT [Concomitant]
     Route: 048
     Dates: start: 20070101

REACTIONS (6)
  - DYSPEPSIA [None]
  - APHAGIA [None]
  - LUNG NEOPLASM [None]
  - MEDICATION ERROR [None]
  - PALPITATIONS [None]
  - MYOCARDIAL INFARCTION [None]
